FAERS Safety Report 4669081-4 (Version None)
Quarter: 2005Q2

REPORT INFORMATION
  Report Type: 
  Country: None (occurrence: None)
  Receive Date: 20050523
  Receipt Date: 20050114
  Transmission Date: 20051028
  Serious: Yes (Hospitalization, Other)
  Sender: FDA-Public Use
  Company Number: PHRM2005FR00584

PATIENT
  Age: 74 Year
  Sex: Female
  Weight: 60 kg

DRUGS (3)
  1. ZOMETA [Suspect]
     Indication: MULTIPLE MYELOMA
     Dosage: 4 MG, QMO
     Route: 042
     Dates: start: 20040101, end: 20041201
  2. SOLUPRED [Concomitant]
     Indication: MULTIPLE MYELOMA
     Route: 048
     Dates: start: 20040101, end: 20041101
  3. ALKERAN [Suspect]
     Indication: MULTIPLE MYELOMA
     Dosage: 6 DF FROM DAY1 TO DAY4
     Route: 048
     Dates: start: 20040101, end: 20041101

REACTIONS (3)
  - FACE OEDEMA [None]
  - OSTEONECROSIS [None]
  - PAIN IN JAW [None]
